FAERS Safety Report 4341310-6 (Version None)
Quarter: 2004Q1

REPORT INFORMATION
  Report Type: 
  Country: None (occurrence: None)
  Receive Date: 20040314
  Receipt Date: 20031104
  Transmission Date: 20041129
  Serious: Yes (Hospitalization)
  Sender: FDA-Public Use
  Company Number: 2003-BP-09347BP(0)

PATIENT
  Sex: Female

DRUGS (1)
  1. MOBIC [Suspect]
     Indication: OSTEOARTHRITIS
     Dosage: 15 MG (15 MG, 1 QD), PO
     Route: 048
     Dates: end: 20030925

REACTIONS (6)
  - ANAEMIA [None]
  - BLOOD CREATININE INCREASED [None]
  - BLOOD UREA INCREASED [None]
  - GASTROINTESTINAL HAEMORRHAGE [None]
  - HYPERTENSION [None]
  - RENAL FAILURE [None]
